FAERS Safety Report 23101679 (Version 1)
Quarter: 2023Q4

REPORT INFORMATION
  Report Type: Spontaneous
  Country: US (occurrence: US)
  Receive Date: 20231025
  Receipt Date: 20231025
  Transmission Date: 20240110
  Serious: No
  Sender: FDA-Public Use
  Company Number: US-SANOFI-01807939

PATIENT

DRUGS (2)
  1. TOUJEO [Suspect]
     Active Substance: INSULIN GLARGINE
     Dosage: 32 IU
  2. TOUJEO [Suspect]
     Active Substance: INSULIN GLARGINE
     Dosage: 42 IU

REACTIONS (1)
  - Hypoglycaemia [Unknown]
